FAERS Safety Report 25999413 (Version 2)
Quarter: 2025Q4

REPORT INFORMATION
  Report Type: Other
  Country: CA (occurrence: CA)
  Receive Date: 20251105
  Receipt Date: 20251106
  Transmission Date: 20260118
  Serious: Yes (Other)
  Sender: INTERCEPT PHARMACEUTICALS
  Company Number: CA-INTERCEPT-PM2021000436

PATIENT
  Age: 64 Year
  Sex: Female
  Weight: 75.3 kg

DRUGS (36)
  1. OCALIVA [Suspect]
     Active Substance: OBETICHOLIC ACID
     Indication: Primary biliary cholangitis
     Dosage: 5 MG, QD
     Dates: start: 20201112
  2. OCALIVA [Suspect]
     Active Substance: OBETICHOLIC ACID
     Dosage: 5 MG, QOD
  3. OCALIVA [Suspect]
     Active Substance: OBETICHOLIC ACID
     Dosage: 5 MG, QD
     Dates: start: 20210211
  4. OCALIVA [Suspect]
     Active Substance: OBETICHOLIC ACID
     Dosage: 5 MG, TIW (3 TIMES A WEEK/ MON, WED, AND FRI)
  5. URSODIOL [Concomitant]
     Active Substance: URSODIOL
     Indication: Product used for unknown indication
     Dosage: 1000 MG, QD
  6. URSODIOL [Concomitant]
     Active Substance: URSODIOL
     Dosage: 1500 MG, QD
  7. URSODIOL [Concomitant]
     Active Substance: URSODIOL
     Dosage: 3 DOSAGE FORM, QD
  8. URSODIOL [Concomitant]
     Active Substance: URSODIOL
     Dosage: 3 DOSAGE FORM, QD
  9. URSODIOL [Concomitant]
     Active Substance: URSODIOL
     Dosage: 1500 MILLIGRAM, QD
  10. NEXIUM I.V. [Concomitant]
     Active Substance: ESOMEPRAZOLE SODIUM
     Indication: Product used for unknown indication
     Dosage: 40 MG, QD
  11. NEXIUM I.V. [Concomitant]
     Active Substance: ESOMEPRAZOLE SODIUM
     Dosage: 40 MG, BID (TABLET,DELAYED RELEASE)
  12. NEXIUM I.V. [Concomitant]
     Active Substance: ESOMEPRAZOLE SODIUM
     Dosage: 40 MG, QD
  13. NEXIUM I.V. [Concomitant]
     Active Substance: ESOMEPRAZOLE SODIUM
     Dosage: 40 MG, BID (TABLET,DELAYED RELEASE)
  14. NEXIUM I.V. [Concomitant]
     Active Substance: ESOMEPRAZOLE SODIUM
     Dosage: 40 MG, QD
  15. NEXIUM I.V. [Concomitant]
     Active Substance: ESOMEPRAZOLE SODIUM
     Dosage: 40 MG, BID (TABLET,DELAYED RELEASE)
  16. CHOLESTYRAMINE [Concomitant]
     Active Substance: CHOLESTYRAMINE
     Indication: Product used for unknown indication
     Dosage: 4 G, BID
  17. BEZAFIBRATE [Concomitant]
     Active Substance: BEZAFIBRATE
     Indication: Pruritus
     Dosage: 400 MG (X3/WK)
  18. BEZAFIBRATE [Concomitant]
     Active Substance: BEZAFIBRATE
     Dosage: 400 MG, QD (MOUTH)
  19. BEZAFIBRATE [Concomitant]
     Active Substance: BEZAFIBRATE
     Dosage: 400 MG, QD
  20. BEZAFIBRATE [Concomitant]
     Active Substance: BEZAFIBRATE
     Dosage: 400 MG, QD
  21. ATENOLOL [Concomitant]
     Active Substance: ATENOLOL
     Indication: Product used for unknown indication
     Dosage: 25 MG, QD
  22. ATENOLOL [Concomitant]
     Active Substance: ATENOLOL
     Dosage: 12.5 MG, QD
  23. ATENOLOL [Concomitant]
     Active Substance: ATENOLOL
     Dosage: 25 MG, QD
  24. ATENOLOL [Concomitant]
     Active Substance: ATENOLOL
     Dosage: 25 MG, QD
  25. DESLORATADINE [Concomitant]
     Active Substance: DESLORATADINE
     Indication: Product used for unknown indication
     Dosage: 5 MG, QD
  26. DESLORATADINE [Concomitant]
     Active Substance: DESLORATADINE
     Dosage: 5 MG, QD
  27. DESLORATADINE [Concomitant]
     Active Substance: DESLORATADINE
     Dosage: 5 MG, QD
  28. GABAPENTIN [Concomitant]
     Active Substance: GABAPENTIN
     Indication: Pruritus
     Dosage: 400 MG, TID
     Dates: start: 20220928
  29. ZOPICLONE [Concomitant]
     Active Substance: ZOPICLONE
     Indication: Pruritus
     Dosage: UNK, QD (NIGHTLY)
  30. ZOPICLONE [Concomitant]
     Active Substance: ZOPICLONE
     Dosage: UNK, QD
  31. ZOPICLONE [Concomitant]
     Active Substance: ZOPICLONE
     Dosage: 5 MILLIGRAM, QD
  32. ZOPICLONE [Concomitant]
     Active Substance: ZOPICLONE
     Dosage: UNK, QD
  33. COLESEVELAM [Concomitant]
     Active Substance: COLESEVELAM
     Indication: Pruritus
     Dosage: 625 MG, BID (WITH BREAKFAST AND DINNER)
     Dates: start: 20241016, end: 20251016
  34. MAGNESIUM CITRATE [Concomitant]
     Active Substance: MAGNESIUM CITRATE
     Indication: Pruritus
     Dosage: UNK UNK, SINGLE
  35. PANTOPRAZOLE MAGNESIUM [Concomitant]
     Active Substance: PANTOPRAZOLE MAGNESIUM
     Indication: Pruritus
     Dosage: 40 MG, BID
  36. VITAMIN D3 [Concomitant]
     Active Substance: CHOLECALCIFEROL
     Indication: Pruritus
     Dosage: 2000 UNIT, QD

REACTIONS (14)
  - Thrombosis [Recovered/Resolved]
  - Portal vein thrombosis [Unknown]
  - Portal hypertension [Unknown]
  - Hepatic cirrhosis [Unknown]
  - Ascites [Recovered/Resolved]
  - Platelet count decreased [Not Recovered/Not Resolved]
  - Laboratory test abnormal [Unknown]
  - Sleep disorder [Recovered/Resolved]
  - COVID-19 [Unknown]
  - Aspartate aminotransferase abnormal [Unknown]
  - Gamma-glutamyltransferase abnormal [Not Recovered/Not Resolved]
  - Blood alkaline phosphatase abnormal [Unknown]
  - Pruritus [Recovering/Resolving]
  - Therapy interrupted [Unknown]

NARRATIVE: CASE EVENT DATE: 20211217
